FAERS Safety Report 5326268-5 (Version None)
Quarter: 2007Q2

REPORT INFORMATION
  Report Type: 
  Country: None (occurrence: None)
  Receive Date: 20070405
  Receipt Date: 20070405
  Transmission Date: 20071010
  Serious: Yes (Disabling)
  Sender: FDA-Public Use
  Company Number: None

PATIENT

DRUGS (1)
  1. LACTATED RINGER'S IN PLASTIC CONTAINER [Suspect]
     Indication: INTRAVENOUS CATHETER MANAGEMENT
     Dates: start: 20070101, end: 20070331

REACTIONS (1)
  - PHARMACEUTICAL PRODUCT COMPLAINT [None]
